FAERS Safety Report 9803094 (Version 2)
Quarter: 2014Q1

REPORT INFORMATION
  Report Type: Spontaneous
  Country: US (occurrence: US)
  Receive Date: 20140108
  Receipt Date: 20140203
  Transmission Date: 20141002
  Serious: Yes (Other)
  Sender: FDA-Public Use
  Company Number: US-AMGEN-USASP2014000216

PATIENT
  Age: 71 Year
  Sex: Male

DRUGS (2)
  1. NPLATE [Suspect]
     Indication: IMMUNE THROMBOCYTOPENIC PURPURA
     Dosage: UNK
     Route: 065
     Dates: start: 20090901
  2. PREDNISONE [Concomitant]
     Route: 065

REACTIONS (2)
  - Drug effect decreased [Unknown]
  - Platelet count abnormal [Unknown]
